FAERS Safety Report 7272573-5 (Version None)
Quarter: 2011Q1

REPORT INFORMATION
  Report Type: 
  Country: None (occurrence: None)
  Receive Date: 20110131
  Receipt Date: 20110131
  Transmission Date: 20110831
  Serious: Yes (Death, Life-Threatening)
  Sender: FDA-Public Use
  Company Number: None

PATIENT
  Sex: Female
  Weight: 70.9 kg

DRUGS (10)
  1. SQ HEPARIN [Concomitant]
  2. DERMABOND [Concomitant]
  3. HEPARIN [Concomitant]
  4. PAPAVERINE [Concomitant]
  5. PROTAMINE SULFATE [Suspect]
     Indication: HAEMORRHAGE
     Dates: start: 20101025, end: 20101025
  6. PROTAMINE SULFATE [Suspect]
     Indication: FISTULA REPAIR
     Dates: start: 20101025, end: 20101025
  7. MARCAINE [Concomitant]
  8. BACITRACIN [Concomitant]
  9. HYDROCORTISONE [Concomitant]
  10. INSULIN SLIDING SCALE [Concomitant]

REACTIONS (3)
  - CIRCULATORY COLLAPSE [None]
  - HYPOTENSION [None]
  - UNRESPONSIVE TO STIMULI [None]
